FAERS Safety Report 23579534 (Version 1)
Quarter: 2024Q1

REPORT INFORMATION
  Report Type: Spontaneous
  Country: US (occurrence: None)
  Receive Date: 20240228
  Receipt Date: 20240228
  Transmission Date: 20240410
  Serious: Yes (Other)
  Sender: FDA-Public Use
  Company Number: None

PATIENT
  Sex: Male

DRUGS (1)
  1. CREON [Suspect]
     Active Substance: PANCRELIPASE AMYLASE\PANCRELIPASE LIPASE\PANCRELIPASE PROTEASE
     Indication: Cystic fibrosis
     Dosage: FREQ: GIVE 2 CAPSULES WITH EACH FEEDING - OPEN CAPSULE AND SPRINKLE SPHERES IN APPLESAUCE MAXIMUM OF
     Route: 048
     Dates: start: 20220412

REACTIONS (2)
  - Respiratory syncytial virus infection [None]
  - COVID-19 [None]
